FAERS Safety Report 12157967 (Version 1)
Quarter: 2016Q1

REPORT INFORMATION
  Report Type: Spontaneous
  Country: US (occurrence: US)
  Receive Date: 20160308
  Receipt Date: 20160308
  Transmission Date: 20160526
  Serious: No
  Sender: FDA-Public Use
  Company Number: US-JNJFOC-20141215542

PATIENT
  Age: 85 Year
  Sex: Female
  Weight: 29 kg

DRUGS (9)
  1. ASA [Concomitant]
     Active Substance: ASPIRIN
  2. TYLENOL [Concomitant]
     Active Substance: ACETAMINOPHEN
  3. CRESTOR [Concomitant]
     Active Substance: ROSUVASTATIN CALCIUM
  4. PAROXETINE [Concomitant]
     Active Substance: PAROXETINE\PAROXETINE HYDROCHLORIDE
  5. MELATONIN [Concomitant]
     Active Substance: MELATONIN
     Indication: INSOMNIA
  6. COQ10 [Concomitant]
     Active Substance: UBIDECARENONE
  7. IMBRUVICA [Suspect]
     Active Substance: IBRUTINIB
     Indication: CHRONIC LYMPHOCYTIC LEUKAEMIA
     Route: 065
     Dates: start: 20140613
  8. CALCIUM W/COLECALCIFEROL [Concomitant]
     Active Substance: CALCIUM\CHOLECALCIFEROL
  9. VITAMIN D [Concomitant]
     Active Substance: CHOLECALCIFEROL

REACTIONS (2)
  - Intervertebral disc degeneration [Unknown]
  - Pain in extremity [Unknown]

NARRATIVE: CASE EVENT DATE: 201412
